FAERS Safety Report 6639762-1 (Version None)
Quarter: 2010Q1

REPORT INFORMATION
  Report Type: 
  Country: None (occurrence: None)
  Receive Date: 20100318
  Receipt Date: 20100311
  Transmission Date: 20100710
  Serious: Yes (Death, Other)
  Sender: FDA-Public Use
  Company Number: PHEH2007US11452

PATIENT
  Sex: Male

DRUGS (39)
  1. AREDIA [Suspect]
     Dosage: MONTHLY
  2. MELPHALAN HYDROCHLORIDE [Concomitant]
  3. THALIDOMIDE [Concomitant]
  4. PREDNISONE [Concomitant]
  5. GABAPENTIN [Concomitant]
     Dosage: 100 MG, UNK
  6. NEURONTIN [Concomitant]
     Dosage: 400 MG, UNK
  7. HYDROCODONE [Concomitant]
  8. CLINDAMYCIN [Concomitant]
     Dosage: 150 MG, UNK
  9. PENICILLIN ^GRUNENTHAL^ [Concomitant]
     Dosage: 500 MG, UNK
  10. CIPRO [Concomitant]
     Dosage: 250 MG, UNK
  11. ALKERAN [Concomitant]
     Dosage: 2 MG, UNK
  12. COZAAR [Concomitant]
     Dosage: 50 MG, UNK
  13. NORVASC [Concomitant]
     Dosage: 10 MG, UNK
  14. PRINIVIL [Concomitant]
     Dosage: 20 MG, UNK
  15. MINOXIDIL [Concomitant]
     Dosage: 10 MG, UNK
  16. PREDNISOLONE [Concomitant]
  17. CARDURA                                 /IRE/ [Concomitant]
     Dosage: 8 MG HS
  18. ATENOLOL [Concomitant]
     Dosage: 100MG HS
  19. PROBENECID [Concomitant]
     Dosage: 500MG QD
     Dates: end: 19990729
  20. LASIX [Concomitant]
     Dosage: 20MG QD
  21. AXID [Concomitant]
     Dosage: 150MG BID
  22. ATROVENT [Concomitant]
  23. PROSCAR [Concomitant]
     Dosage: 5MG QD
  24. LIPITOR [Concomitant]
     Dosage: 10MG QD
  25. NAPROSYN [Concomitant]
     Dosage: 500MG QD
     Dates: end: 19990729
  26. ALLOPURINOL [Concomitant]
     Dosage: 100MG QD
     Route: 048
  27. AUGMENTIN                               /SCH/ [Concomitant]
  28. VELCADE [Concomitant]
  29. FOSAMAX [Concomitant]
  30. LEVOTHYROXINE SODIUM [Concomitant]
  31. FUROSEMIDE [Concomitant]
  32. GATIFLOXACIN [Concomitant]
  33. OMEPRAZOLE [Concomitant]
  34. DEXAMETHASONE [Concomitant]
  35. PROCRIT                            /00909301/ [Concomitant]
  36. CHLORHEXIDINE GLUCONATE [Concomitant]
  37. PENICILLIN VK [Concomitant]
  38. CIPROFLOXACIN [Concomitant]
  39. SEVELAMER [Concomitant]

REACTIONS (30)
  - ABSCESS DRAINAGE [None]
  - ANHEDONIA [None]
  - ANXIETY [None]
  - ARTERIOSCLEROSIS [None]
  - ARTERIOVENOUS FISTULA [None]
  - ATRIAL FIBRILLATION [None]
  - BONE PAIN [None]
  - CARDIAC FAILURE CONGESTIVE [None]
  - CARDIOMEGALY [None]
  - CATHETER PLACEMENT [None]
  - CHRONIC OBSTRUCTIVE PULMONARY DISEASE [None]
  - DEATH [None]
  - DEVICE RELATED INFECTION [None]
  - DISABILITY [None]
  - GASTRITIS [None]
  - HAEMODIALYSIS [None]
  - HYPERKALAEMIA [None]
  - INJURY [None]
  - LUNG INFILTRATION [None]
  - NEOPLASM [None]
  - OSTEONECROSIS [None]
  - PAIN [None]
  - PANCYTOPENIA [None]
  - PLEURAL EFFUSION [None]
  - RENAL FAILURE CHRONIC [None]
  - SQUAMOUS CELL CARCINOMA [None]
  - SWELLING [None]
  - TOOTH EXTRACTION [None]
  - TUMOUR NECROSIS [None]
  - ULCER [None]
